FAERS Safety Report 13615051 (Version 1)
Quarter: 2017Q2

REPORT INFORMATION
  Report Type: Report from Study
  Country: US (occurrence: US)
  Receive Date: 20170606
  Receipt Date: 20170606
  Transmission Date: 20170830
  Serious: Yes (Life-Threatening)
  Sender: FDA-Public Use
  Company Number: US-BION-006361

PATIENT
  Age: 18 Year
  Sex: Female

DRUGS (5)
  1. HYDROCODONE [Suspect]
     Active Substance: HYDROCODONE
  2. PARACETAMOL [Suspect]
     Active Substance: ACETAMINOPHEN
  3. LOPERAMIDE HYDROCHLORIDE. [Suspect]
     Active Substance: LOPERAMIDE HYDROCHLORIDE
  4. BENZYLPENICILLIN [Suspect]
     Active Substance: PENICILLIN G
  5. TOPIRAMATE. [Suspect]
     Active Substance: TOPIRAMATE

REACTIONS (8)
  - Somnolence [Unknown]
  - Hepatic enzyme increased [Unknown]
  - Intentional product misuse [Not Recovered/Not Resolved]
  - Hypertension [Unknown]
  - Tachycardia [Unknown]
  - Lethargy [Unknown]
  - Hypotension [Unknown]
  - Electrolyte imbalance [Unknown]
